FAERS Safety Report 4839600-3 (Version None)
Quarter: 2005Q4

REPORT INFORMATION
  Report Type: 
  Country: None (occurrence: None)
  Receive Date: 20051125
  Receipt Date: 20051115
  Transmission Date: 20060501
  Serious: Yes (Death)
  Sender: FDA-Public Use
  Company Number: 230002M05GBR

PATIENT
  Age: 43 Year
  Sex: Male

DRUGS (1)
  1. REBIF [Suspect]
     Indication: MULTIPLE SCLEROSIS
     Dosage: 22
     Dates: start: 20050113

REACTIONS (14)
  - BRAIN STEM HAEMORRHAGE [None]
  - BRAIN STEM ISCHAEMIA [None]
  - CEREBELLAR HAEMORRHAGE [None]
  - CEREBRAL HAEMORRHAGE [None]
  - CEREBRAL ISCHAEMIA [None]
  - COMMUNICATION DISORDER [None]
  - CONVULSION [None]
  - DISORIENTATION [None]
  - DYSPNOEA [None]
  - FATIGUE [None]
  - INCOHERENT [None]
  - INFLUENZA LIKE ILLNESS [None]
  - SNORING [None]
  - SOMNOLENCE [None]
